FAERS Safety Report 5601880-4 (Version None)
Quarter: 2008Q1

REPORT INFORMATION
  Report Type: 
  Country: None (occurrence: None)
  Receive Date: 20080124
  Receipt Date: 20080118
  Transmission Date: 20080703
  Serious: Yes (Other)
  Sender: FDA-Public Use
  Company Number: CA-PFIZER INC-2008006235

PATIENT

DRUGS (3)
  1. CADUET [Suspect]
     Indication: BLOOD CHOLESTEROL
     Dosage: TEXT:5 MG/20 MG
     Route: 048
     Dates: start: 20071220, end: 20080115
  2. ATACAND [Concomitant]
     Route: 048
  3. DIDROCAL [Concomitant]
     Route: 048

REACTIONS (8)
  - ABDOMINAL PAIN UPPER [None]
  - DIZZINESS [None]
  - FALL [None]
  - GINGIVAL BLEEDING [None]
  - HYPOAESTHESIA [None]
  - HYPOKINESIA [None]
  - MUSCLE SPASMS [None]
  - RENAL PAIN [None]
